FAERS Safety Report 9158085 (Version 1)
Quarter: 2013Q1

REPORT INFORMATION
  Report Type: Spontaneous
  Country: US (occurrence: US)
  Receive Date: 20130312
  Receipt Date: 20130312
  Transmission Date: 20140127
  Serious: Yes (Other)
  Sender: FDA-Public Use
  Company Number: US-BAYER-2013-028294

PATIENT
  Age: 86 Year
  Sex: Female
  Weight: 72.56 kg

DRUGS (5)
  1. BAYER ASPIRIN REGIMEN ADULT LOW STRENGTH [Suspect]
     Dosage: 1 DF, QD
     Route: 048
     Dates: start: 201210
  2. LISINOPRIL [Concomitant]
  3. DIOXIN [Concomitant]
  4. VERAPAMIL [Concomitant]
  5. DIURETICS [Concomitant]
     Dosage: 12.5 MG, UNK

REACTIONS (2)
  - Pharyngeal haemorrhage [Recovered/Resolved]
  - Epistaxis [Recovered/Resolved]
